FAERS Safety Report 24970188 (Version 1)
Quarter: 2025Q1

REPORT INFORMATION
  Report Type: Spontaneous
  Country: FR (occurrence: FR)
  Receive Date: 20250214
  Receipt Date: 20250214
  Transmission Date: 20250409
  Serious: Yes (Other)
  Sender: RANBAXY
  Company Number: FR-SUN PHARMACEUTICAL INDUSTRIES LTD-2025RR-493836

PATIENT
  Age: 32 Year
  Sex: Female

DRUGS (4)
  1. AZITHROMYCIN [Suspect]
     Active Substance: AZITHROMYCIN
     Indication: Eye infection toxoplasmal
     Route: 048
     Dates: start: 20240813, end: 20240815
  2. DIAMOX SEQUELS [Suspect]
     Active Substance: ACETAZOLAMIDE
     Indication: Eye infection toxoplasmal
     Route: 048
     Dates: start: 20240814, end: 20240816
  3. DARAPRIM [Suspect]
     Active Substance: PYRIMETHAMINE
     Indication: Eye infection toxoplasmal
     Route: 048
     Dates: start: 20240808
  4. PYRIMETHAMINE [Suspect]
     Active Substance: PYRIMETHAMINE
     Indication: Product used for unknown indication
     Route: 065

REACTIONS (1)
  - Acute kidney injury [Unknown]

NARRATIVE: CASE EVENT DATE: 20240801
